FAERS Safety Report 21592673 (Version 1)
Quarter: 2022Q4

REPORT INFORMATION
  Report Type: Spontaneous
  Country: US (occurrence: US)
  Receive Date: 20221114
  Receipt Date: 20221114
  Transmission Date: 20230113
  Serious: Yes (Other)
  Sender: FDA-Public Use
  Company Number: US-VIIV HEALTHCARE LIMITED-US2022AMR162342

PATIENT
  Sex: Male

DRUGS (2)
  1. RILPIVIRINE [Suspect]
     Active Substance: RILPIVIRINE
     Indication: Product used for unknown indication
     Dosage: UNK
     Route: 065
  2. CABOTEGRAVIR [Suspect]
     Active Substance: CABOTEGRAVIR
     Indication: Product used for unknown indication
     Dosage: UNK
     Route: 065

REACTIONS (8)
  - Immediate post-injection reaction [Recovered/Resolved]
  - Dyspnoea [Recovered/Resolved]
  - Bronchospasm [Recovered/Resolved]
  - Agitation [Recovered/Resolved]
  - Dizziness [Recovered/Resolved]
  - Flushing [Recovered/Resolved]
  - Hyperhidrosis [Recovered/Resolved]
  - Abscess [Unknown]
